FAERS Safety Report 5060390-6 (Version None)
Quarter: 2006Q3

REPORT INFORMATION
  Report Type: 
  Country: None (occurrence: None)
  Receive Date: 20060720
  Receipt Date: 20060706
  Transmission Date: 20061208
  Serious: Yes (Hospitalization)
  Sender: FDA-Public Use
  Company Number: S06-SWI-02698-01

PATIENT
  Age: 54 Year
  Sex: Female

DRUGS (4)
  1. ESCITALOPRAM OXALATE [Suspect]
     Indication: ACUTE PSYCHOSIS
     Dosage: 20 MG QD PO
     Route: 048
     Dates: start: 20060201, end: 20060422
  2. SEROQUEL [Suspect]
     Indication: ACUTE PSYCHOSIS
     Dosage: 800  MG QD PO
     Route: 048
     Dates: start: 20040405, end: 20060421
  3. SOLIAN (AMISULPRIDE) [Suspect]
     Indication: ACUTE PSYCHOSIS
     Dosage: 600 MG QD PO
     Route: 048
     Dates: start: 20060121, end: 20060422
  4. EDRONAX (REBOXETINE) [Suspect]
     Indication: ACUTE PSYCHOSIS
     Dosage: 600 MG QD PO
     Route: 048
     Dates: start: 20060121, end: 20060422

REACTIONS (9)
  - BLOOD CREATINE PHOSPHOKINASE INCREASED [None]
  - DEPRESSED LEVEL OF CONSCIOUSNESS [None]
  - DRUG TOXICITY [None]
  - FALL [None]
  - HYPERHIDROSIS [None]
  - MEDICATION ERROR [None]
  - MUSCLE RIGIDITY [None]
  - MYOCLONUS [None]
  - PYREXIA [None]
